FAERS Safety Report 14831849 (Version 1)
Quarter: 2018Q2

REPORT INFORMATION
  Report Type: Spontaneous
  Country: US (occurrence: US)
  Receive Date: 20180501
  Receipt Date: 20180501
  Transmission Date: 20180711
  Serious: Yes (Hospitalization)
  Sender: FDA-Public Use
  Company Number: US-BIOGEN-2018BI00564526

PATIENT
  Age: 47 Year
  Sex: Female

DRUGS (1)
  1. TECFIDERA [Suspect]
     Active Substance: DIMETHYL FUMARATE
     Indication: MULTIPLE SCLEROSIS
     Route: 065
     Dates: start: 20160811

REACTIONS (3)
  - Polyp [Recovered/Resolved]
  - Night sweats [Not Recovered/Not Resolved]
  - Colon cancer stage II [Recovered/Resolved]

NARRATIVE: CASE EVENT DATE: 201710
